FAERS Safety Report 23869760 (Version 4)
Quarter: 2024Q3

REPORT INFORMATION
  Report Type: Spontaneous
  Country: JP (occurrence: JP)
  Receive Date: 20240517
  Receipt Date: 20240716
  Transmission Date: 20241017
  Serious: Yes (Other)
  Sender: TEVA
  Company Number: JP-OTSUKA-2024_010042

PATIENT
  Age: 52 Year
  Sex: Female

DRUGS (1)
  1. FREMANEZUMAB [Suspect]
     Active Substance: FREMANEZUMAB
     Indication: Migraine
     Dosage: 225MG/SHOT
     Route: 058
     Dates: start: 20230815, end: 20240405

REACTIONS (2)
  - Bedridden [Recovered/Resolved]
  - Erythema [Recovered/Resolved]

NARRATIVE: CASE EVENT DATE: 20240405
